FAERS Safety Report 7413624-4 (Version None)
Quarter: 2011Q2

REPORT INFORMATION
  Report Type: 
  Country: None (occurrence: None)
  Receive Date: 20110413
  Receipt Date: 20110316
  Transmission Date: 20111010
  Serious: No
  Sender: FDA-Public Use
  Company Number: US-BAYER-2011-023348

PATIENT
  Sex: Male

DRUGS (1)
  1. FINACEA [Suspect]

REACTIONS (2)
  - PRODUCT QUALITY ISSUE [None]
  - ROSACEA [None]
